FAERS Safety Report 7766572-4 (Version None)
Quarter: 2011Q3

REPORT INFORMATION
  Report Type: 
  Country: None (occurrence: None)
  Receive Date: 20110922
  Receipt Date: 20091028
  Transmission Date: 20111222
  Serious: No
  Sender: FDA-Public Use
  Company Number: 2009BI035140

PATIENT
  Sex: Female

DRUGS (1)
  1. TYSABRI [Suspect]
     Indication: MULTIPLE SCLEROSIS
     Route: 042
     Dates: start: 20070813

REACTIONS (2)
  - ABDOMINAL DISCOMFORT [None]
  - NAUSEA [None]
